FAERS Safety Report 7851461-7 (Version None)
Quarter: 2011Q4

REPORT INFORMATION
  Report Type: 
  Country: None (occurrence: None)
  Receive Date: 20111026
  Receipt Date: 20111021
  Transmission Date: 20120403
  Serious: Yes (Hospitalization)
  Sender: FDA-Public Use
  Company Number: US-ROCHE-GNE316307

PATIENT
  Sex: Female
  Weight: 74.456 kg

DRUGS (12)
  1. ALEVE [Concomitant]
     Indication: HEADACHE
  2. CALCIUM CARBONATE [Concomitant]
     Indication: DYSPEPSIA
     Dosage: 1-2
     Route: 048
     Dates: start: 20110201
  3. OMALIZUMAB [Suspect]
     Dosage: 300 MG, Q4W
     Dates: start: 20101119
  4. NYQUIL [Concomitant]
     Indication: NASOPHARYNGITIS
  5. PROVENTIL GENTLEHALER [Concomitant]
     Indication: ASTHMA
     Dosage: PRN
     Dates: start: 19820101
  6. EXTRA STRENGTH TYLENOL HEADACHE PLUS [Concomitant]
     Indication: HEADACHE
  7. OMALIZUMAB [Suspect]
     Dosage: 300 MG, Q4W
     Dates: start: 20101217
  8. SUDAFED 12 HOUR [Concomitant]
     Indication: NASOPHARYNGITIS
  9. OMALIZUMAB [Suspect]
     Indication: ASTHMA
     Route: 058
     Dates: start: 20051118, end: 20101217
  10. IBUPROFEN (ADVIL) [Concomitant]
     Indication: HEADACHE
  11. VITAMIN AND MINERAL PRENATAL SUPPLEMENT W/ FOLIC ACID CAP [Concomitant]
     Indication: PREGNANCY
     Dosage: 1
     Dates: start: 20110201
  12. EXTRA STRENGTH TYLENOL HEADACHE PLUS [Concomitant]
     Indication: PAIN

REACTIONS (2)
  - PROLONGED LABOUR [None]
  - MATERNAL EXPOSURE DURING PREGNANCY [None]
